FAERS Safety Report 7216018-X (Version None)
Quarter: 2011Q1

REPORT INFORMATION
  Report Type: 
  Country: None (occurrence: None)
  Receive Date: 20110107
  Receipt Date: 20101230
  Transmission Date: 20110831
  Serious: Yes (Other)
  Sender: FDA-Public Use
  Company Number: TW-GENENTECH-311748

PATIENT
  Sex: Female

DRUGS (5)
  1. METHOTREXATE [Concomitant]
     Indication: RHEUMATOID ARTHRITIS
     Dosage: 10 MG, 1/WEEK
     Dates: start: 20081217, end: 20101202
  2. MABTHERA [Suspect]
     Indication: RHEUMATOID ARTHRITIS
     Dosage: 1000 MG, UNK
     Route: 042
     Dates: start: 20090819
  3. PREDNISOLONE [Concomitant]
     Indication: PRODUCT USED FOR UNKNOWN INDICATION
     Dosage: 5 MG, UNK
  4. MABTHERA [Suspect]
     Dosage: 1000 MG, UNK
     Route: 042
     Dates: start: 20100414
  5. STEROID NOS [Concomitant]
     Indication: RHEUMATOID ARTHRITIS
     Dosage: UNK

REACTIONS (6)
  - COMA HEPATIC [None]
  - HEPATITIS FULMINANT [None]
  - MULTI-ORGAN FAILURE [None]
  - HEPATIC FAILURE [None]
  - HEPATITIS B [None]
  - HEPATIC ENCEPHALOPATHY [None]
